FAERS Safety Report 10725349 (Version 2)
Quarter: 2015Q1

REPORT INFORMATION
  Report Type: Report from Study
  Country: JP (occurrence: JP)
  Receive Date: 20150121
  Receipt Date: 20150311
  Transmission Date: 20150721
  Serious: Yes (Other)
  Sender: FDA-Public Use
  Company Number: JP-ROCHE-1521162

PATIENT

DRUGS (2)
  1. ALTEPLASE [Suspect]
     Active Substance: ALTEPLASE
     Indication: ISCHAEMIC STROKE
     Route: 042
  2. RADICUT [Concomitant]
     Active Substance: EDARAVONE
     Indication: ISCHAEMIC STROKE
     Route: 042

REACTIONS (3)
  - Brain oedema [Unknown]
  - Hydrocephalus [Unknown]
  - Cerebral haemorrhage [Unknown]
